FAERS Safety Report 5253773-2 (Version None)
Quarter: 2007Q1

REPORT INFORMATION
  Report Type: 
  Country: None (occurrence: None)
  Receive Date: 20070220
  Receipt Date: 20070202
  Transmission Date: 20070707
  Serious: Yes (Hospitalization)
  Sender: FDA-Public Use
  Company Number: THYM-11278

PATIENT
  Age: 50 Year
  Sex: Male

DRUGS (12)
  1. THYMOGLOBULIN [Suspect]
     Indication: RENAL AND PANCREAS TRANSPLANT
     Dosage: 75 MG QD IV
     Route: 042
     Dates: start: 20050501, end: 20050510
  2. THYMOGLOBULIN [Suspect]
     Indication: RENAL AND PANCREAS TRANSPLANT
     Dates: start: 20050511, end: 20050517
  3. SIROLIMUS [Suspect]
     Indication: IMMUNOSUPPRESSION
     Dosage: 8 MG QD PO
     Route: 048
     Dates: start: 20050517, end: 20050517
  4. SIROLIMUS [Suspect]
     Indication: IMMUNOSUPPRESSION
     Dates: start: 20050518, end: 20050808
  5. TACROLIMUS [Suspect]
     Indication: IMMUNOSUPPRESSION
  6. BACTRIM [Concomitant]
  7. VALACYCLOVIR HCL [Concomitant]
  8. HEPARIN [Concomitant]
  9. ASPIRIN [Concomitant]
  10. CELLCEPT [Concomitant]
  11. SOLU-MEDROL [Concomitant]
  12. STEROIDS (PREDNISONE OR PREDNISOLONE) [Concomitant]

REACTIONS (1)
  - HERNIAL EVENTRATION [None]
